FAERS Safety Report 7465518-6 (Version None)
Quarter: 2011Q2

REPORT INFORMATION
  Report Type: 
  Country: None (occurrence: None)
  Receive Date: 20110509
  Receipt Date: 20110427
  Transmission Date: 20111010
  Serious: Yes (Hospitalization)
  Sender: FDA-Public Use
  Company Number: BE-PFIZER INC-2011049208

PATIENT
  Age: 3 Year
  Sex: Female
  Weight: 10 kg

DRUGS (1)
  1. GENOTROPIN [Suspect]
     Indication: SMALL FOR DATES BABY
     Dosage: 0.4 MG, 1X/DAY
     Route: 058
     Dates: start: 20100226

REACTIONS (2)
  - TONSILLAR HYPERTROPHY [None]
  - ADENOIDAL HYPERTROPHY [None]
